FAERS Safety Report 21239625 (Version 2)
Quarter: 2022Q3

REPORT INFORMATION
  Report Type: Report from Study
  Country: BE (occurrence: BE)
  Receive Date: 20220822
  Receipt Date: 20220901
  Transmission Date: 20221026
  Serious: Yes (Death, Hospitalization)
  Sender: FDA-Public Use
  Company Number: BE-IMMUNOCORE, LTD-2022-IMC-001058

PATIENT

DRUGS (3)
  1. TEBENTAFUSP [Suspect]
     Active Substance: TEBENTAFUSP
     Indication: Product used for unknown indication
     Dosage: UNK, SINGLE
     Dates: start: 20220530
  2. TEBENTAFUSP [Suspect]
     Active Substance: TEBENTAFUSP
     Dosage: 68 MICROGRAM
     Dates: start: 20220615, end: 20220615
  3. SOLU-MEDROL [Concomitant]
     Active Substance: METHYLPREDNISOLONE SODIUM SUCCINATE
     Indication: Product used for unknown indication
     Dosage: 40 MILLIGRAM
     Route: 042

REACTIONS (2)
  - Lymphangiosis carcinomatosa [Fatal]
  - Dyspnoea [Fatal]

NARRATIVE: CASE EVENT DATE: 20220623
